FAERS Safety Report 14852199 (Version 3)
Quarter: 2018Q4

REPORT INFORMATION
  Report Type: Spontaneous
  Country: US (occurrence: US)
  Receive Date: 20180507
  Receipt Date: 20181120
  Transmission Date: 20190204
  Serious: No
  Sender: FDA-Public Use
  Company Number: US-PFIZER INC-2017528002

PATIENT
  Age: 65 Year
  Sex: Female

DRUGS (6)
  1. DOCETAXEL. [Suspect]
     Active Substance: DOCETAXEL
     Indication: INVASIVE DUCTAL BREAST CARCINOMA
     Dosage: 70 MG, CYCLIC, EVERY 3 WEEKS
     Dates: start: 20111229, end: 20120307
  2. TAXOTERE [Suspect]
     Active Substance: DOCETAXEL
     Indication: INVASIVE DUCTAL BREAST CARCINOMA
     Dosage: 70 MG, CYCLIC (08 CYCLES), EVERY 3 WEEKS
     Dates: start: 20111229, end: 20120307
  3. TAXOTERE [Suspect]
     Active Substance: DOCETAXEL
     Dosage: 140 MG, CYCLIC (08 CYCLES), EVERY 3 WEEKS
     Dates: start: 20120406, end: 20120427
  4. PARAPLATIN [Concomitant]
     Active Substance: CARBOPLATIN
     Indication: CHEMOTHERAPY
     Dosage: 200 MG, UNK
     Dates: start: 20111229, end: 20120307
  5. PARAPLATIN [Concomitant]
     Active Substance: CARBOPLATIN
     Dosage: 550 MG, UNK
     Dates: start: 20120406, end: 20120427
  6. DOCETAXEL. [Suspect]
     Active Substance: DOCETAXEL
     Dosage: 140 MG, CYCLIC, EVERY 3 WEEKS
     Dates: start: 20120406, end: 20120427

REACTIONS (7)
  - Hair texture abnormal [Not Recovered/Not Resolved]
  - Depressed mood [Unknown]
  - Alopecia [Not Recovered/Not Resolved]
  - Hair disorder [Not Recovered/Not Resolved]
  - Madarosis [Not Recovered/Not Resolved]
  - Hair colour changes [Not Recovered/Not Resolved]
  - Depression [Unknown]

NARRATIVE: CASE EVENT DATE: 20121027
